FAERS Safety Report 4860360-4 (Version None)
Quarter: 2005Q4

REPORT INFORMATION
  Report Type: 
  Country: None (occurrence: None)
  Receive Date: 20051215
  Receipt Date: 20051206
  Transmission Date: 20060501
  Serious: Yes (Hospitalization)
  Sender: FDA-Public Use
  Company Number: 2005BI020280

PATIENT
  Age: 43 Year
  Sex: Female

DRUGS (11)
  1. AVONEX [Suspect]
     Indication: MULTIPLE SCLEROSIS
     Dosage: 30 UG; QW; IM
     Route: 030
     Dates: start: 20020322
  2. AVONEX [Suspect]
     Indication: MULTIPLE SCLEROSIS
     Dosage: 30 UG; QW; IM
     Route: 030
  3. MORPHINE [Concomitant]
  4. ZOLOFT [Concomitant]
  5. TRAZODONE HCL [Concomitant]
  6. CLONAZEPAM [Concomitant]
  7. PROVIGIL [Concomitant]
  8. PRILOSEC [Concomitant]
  9. MIDRIN [Concomitant]
  10. PERCOCET [Concomitant]
  11. ARICEPT [Concomitant]

REACTIONS (16)
  - ANXIETY [None]
  - ASTHMA [None]
  - BEDRIDDEN [None]
  - BLOOD PRESSURE DECREASED [None]
  - CARDIAC DISORDER [None]
  - CONDITION AGGRAVATED [None]
  - DEPRESSION [None]
  - DRUG ADMINISTRATION ERROR [None]
  - EPISTAXIS [None]
  - HEMIPARESIS [None]
  - INFLUENZA LIKE ILLNESS [None]
  - MEMORY IMPAIRMENT [None]
  - MIGRAINE [None]
  - MULTIPLE SCLEROSIS [None]
  - NEUROLOGICAL SYMPTOM [None]
  - PO2 DECREASED [None]
